FAERS Safety Report 17200143 (Version 3)
Quarter: 2020Q2

REPORT INFORMATION
  Report Type: Spontaneous
  Country: JP (occurrence: JP)
  Receive Date: 20191226
  Receipt Date: 20200501
  Transmission Date: 20200713
  Serious: Yes (Death, Hospitalization, Other)
  Sender: FDA-Public Use
  Company Number: JP-ALEXION PHARMACEUTICALS INC.-A201919760

PATIENT

DRUGS (7)
  1. LANSOPRAZOLE. [Concomitant]
     Active Substance: LANSOPRAZOLE
     Indication: PRODUCT USED FOR UNKNOWN INDICATION
     Dosage: 15 MG, DAILY
     Route: 065
     Dates: start: 20170905
  2. SOLIRIS [Suspect]
     Active Substance: ECULIZUMAB
     Dosage: 900 MG, Q2W
     Route: 042
     Dates: end: 202004
  3. CARBAZOCHROME SULFONATE NA [Concomitant]
     Indication: PRODUCT USED FOR UNKNOWN INDICATION
     Dosage: 90 MG, DAILY
     Route: 065
     Dates: start: 20170831
  4. BISOPROLOL FUMARATE. [Concomitant]
     Active Substance: BISOPROLOL FUMARATE
     Indication: PRODUCT USED FOR UNKNOWN INDICATION
     Dosage: 1.25 MG, DAILY
     Route: 065
     Dates: start: 20170912
  5. AZOSEMIDE [Concomitant]
     Active Substance: AZOSEMIDE
     Indication: CARDIAC FAILURE CONGESTIVE
     Dosage: 60 MG, DAILY
     Route: 065
     Dates: start: 20190309, end: 20191205
  6. SOLIRIS [Suspect]
     Active Substance: ECULIZUMAB
     Indication: PAROXYSMAL NOCTURNAL HAEMOGLOBINURIA
     Dosage: UNK
     Route: 042
     Dates: start: 20171012
  7. SPIRONOLACTONE. [Concomitant]
     Active Substance: SPIRONOLACTONE
     Indication: CARDIAC FAILURE CONGESTIVE
     Dosage: 25 MG, DAILY
     Route: 065
     Dates: start: 20190309, end: 20191205

REACTIONS (3)
  - Escherichia bacteraemia [Unknown]
  - Cardiac failure [Fatal]
  - Escherichia urinary tract infection [Recovering/Resolving]

NARRATIVE: CASE EVENT DATE: 20191102
